FAERS Safety Report 23655343 (Version 1)
Quarter: 2024Q1

REPORT INFORMATION
  Report Type: Spontaneous
  Country: US (occurrence: US)
  Receive Date: 20240320
  Receipt Date: 20240320
  Transmission Date: 20240410
  Serious: Yes (Hospitalization, Other)
  Sender: FDA-Public Use
  Company Number: US-SUN PHARMACEUTICAL INDUSTRIES LTD-2024R1-437091

PATIENT
  Age: 68 Year
  Sex: Female

DRUGS (1)
  1. CARVEDILOL [Suspect]
     Active Substance: CARVEDILOL
     Indication: Product used for unknown indication
     Dosage: 25 MILLIGRAM, BID
     Route: 065

REACTIONS (6)
  - Toxicity to various agents [Unknown]
  - Lethargy [Unknown]
  - Hypotension [Unknown]
  - Moaning [Unknown]
  - Sinus bradycardia [Unknown]
  - Hyperglycaemia [Unknown]
